FAERS Safety Report 15908429 (Version 1)
Quarter: 2019Q1

REPORT INFORMATION
  Report Type: Spontaneous
  Country: US (occurrence: US)
  Receive Date: 20190204
  Receipt Date: 20190204
  Transmission Date: 20190417
  Serious: No
  Sender: FDA-Public Use
  Company Number: US-ABBVIE-18K-163-2295381-00

PATIENT
  Sex: Female

DRUGS (1)
  1. HUMIRA [Suspect]
     Active Substance: ADALIMUMAB
     Indication: HIDRADENITIS
     Route: 058
     Dates: end: 20180117

REACTIONS (6)
  - Malaise [Unknown]
  - Pain [Unknown]
  - Joint lock [Unknown]
  - Arthralgia [Unknown]
  - Psoriasis [Unknown]
  - Mobility decreased [Unknown]
